FAERS Safety Report 5038187-2 (Version None)
Quarter: 2006Q2

REPORT INFORMATION
  Report Type: 
  Country: None (occurrence: None)
  Receive Date: 20060623
  Receipt Date: 20060612
  Transmission Date: 20061013
  Serious: Yes (Hospitalization, Other)
  Sender: FDA-Public Use
  Company Number: 2006075017

PATIENT
  Sex: Male

DRUGS (1)
  1. CELEBREX [Suspect]
     Indication: ARTHRITIS
     Dosage: 200 MG (200 MG, 1 IN 1 D),
     Dates: start: 19980101

REACTIONS (4)
  - DEPRESSION [None]
  - DIABETES MELLITUS [None]
  - MYOCARDIAL INFARCTION [None]
  - SYSTEMIC LUPUS ERYTHEMATOSUS [None]
